FAERS Safety Report 19415647 (Version 1)
Quarter: 2021Q2

REPORT INFORMATION
  Report Type: Spontaneous
  Country: US (occurrence: US)
  Receive Date: 20210614
  Receipt Date: 20210614
  Transmission Date: 20210717
  Serious: Yes (Hospitalization)
  Sender: FDA-Public Use
  Company Number: None

PATIENT
  Age: 20 Month
  Sex: Female
  Weight: 15.7 kg

DRUGS (9)
  1. DEXAMETHASONE, PO [Concomitant]
     Dates: start: 20210405, end: 20210502
  2. BACTRIM, PO [Concomitant]
     Dates: start: 20210403
  3. VINCRISTINE, IV [Concomitant]
     Dates: start: 20210405
  4. CYTARABINE, IV [Concomitant]
     Dates: start: 20210510, end: 20210523
  5. METHOTREXATE, INTRATHECAL [Concomitant]
     Dates: start: 20210412
  6. ONDANSETRON, IV/PO [Concomitant]
     Dates: start: 20210405
  7. ONCASPAR [Suspect]
     Active Substance: PEGASPARGASE
     Indication: ACUTE LYMPHOCYTIC LEUKAEMIA
     Dosage: ?          OTHER FREQUENCY:EVERY 3 WEEKS;?
     Route: 042
     Dates: start: 20210408, end: 20210524
  8. MERCAPTOPURINE, PO [Concomitant]
     Dates: start: 20210510, end: 20210523
  9. CYCLOPHOSPHAMIDE, IV [Concomitant]
     Dates: start: 20210510, end: 20210510

REACTIONS (8)
  - Flushing [None]
  - Erythema [None]
  - Stridor [None]
  - Irritability [None]
  - Agitation [None]
  - Crying [None]
  - Hypersensitivity [None]
  - Cough [None]

NARRATIVE: CASE EVENT DATE: 20210524
